FAERS Safety Report 20501699 (Version 3)
Quarter: 2022Q1

REPORT INFORMATION
  Report Type: Spontaneous
  Country: JP (occurrence: JP)
  Receive Date: 20220222
  Receipt Date: 20220330
  Transmission Date: 20220423
  Serious: Yes (Death, Other)
  Sender: FDA-Public Use
  Company Number: JP-MSD-2202JPN001637J

PATIENT
  Age: 80 Year
  Sex: Male

DRUGS (12)
  1. MOLNUPIRAVIR [Suspect]
     Active Substance: MOLNUPIRAVIR
     Indication: COVID-19 treatment
     Dosage: 800 MILLIGRAM, ONCE
     Route: 048
     Dates: start: 20220208, end: 20220208
  2. URSODIOL [Suspect]
     Active Substance: URSODIOL
     Dosage: UNK
     Route: 065
  3. MAGNESIUM OXIDE [Suspect]
     Active Substance: MAGNESIUM OXIDE
     Dosage: UNK
     Route: 065
  4. METOCLOPRAMIDE [Suspect]
     Active Substance: METOCLOPRAMIDE
     Dosage: UNK
     Route: 065
  5. FUDOSTEINE [Suspect]
     Active Substance: FUDOSTEINE
     Dosage: UNK
     Route: 065
  6. HERBALS [Suspect]
     Active Substance: HERBALS
     Dosage: UNK
     Route: 065
  7. AMOXICILLIN [Suspect]
     Active Substance: AMOXICILLIN
     Dosage: UNK
     Route: 065
  8. AUGMENTIN [Suspect]
     Active Substance: AMOXICILLIN\CLAVULANATE POTASSIUM
     Dosage: UNK
     Route: 065
  9. LACTOBACILLUS ACIDOPHILUS\STREPTOCOCCUS FAECAIS [Suspect]
     Active Substance: LACTOBACILLUS ACIDOPHILUS\STREPTOCOCCUS FAECAIS
     Dosage: UNK
     Route: 065
  10. ACETAMINOPHEN [Suspect]
     Active Substance: ACETAMINOPHEN
     Dosage: UNK
     Route: 065
  11. ELECTROLYTES NOS [Suspect]
     Active Substance: ELECTROLYTES NOS
     Dosage: UNK
     Route: 065
  12. BETAHISTINE MESILATE [Suspect]
     Active Substance: BETAHISTINE MESILATE
     Dosage: UNK
     Route: 065

REACTIONS (2)
  - Pancreatic carcinoma [Fatal]
  - COVID-19 [Fatal]

NARRATIVE: CASE EVENT DATE: 20220209
